FAERS Safety Report 14985797 (Version 1)
Quarter: 2018Q2

REPORT INFORMATION
  Report Type: Spontaneous
  Country: US (occurrence: US)
  Receive Date: 20180607
  Receipt Date: 20180607
  Transmission Date: 20180711
  Serious: Yes (Hospitalization)
  Sender: FDA-Public Use
  Company Number: US-BTG INTERNATIONAL LTD-2017BTG01347

PATIENT
  Age: 72 Year
  Sex: Male

DRUGS (2)
  1. METHOTREXATE. [Suspect]
     Active Substance: METHOTREXATE
     Indication: PRODUCT USED FOR UNKNOWN INDICATION
     Route: 065
  2. VORAXAZE [Suspect]
     Active Substance: GLUCARPIDASE
     Indication: TOXICITY TO VARIOUS AGENTS
     Dosage: 50 U/KG, UNK
     Route: 065
     Dates: start: 201708

REACTIONS (1)
  - Blood creatinine increased [Unknown]

NARRATIVE: CASE EVENT DATE: 201708
